FAERS Safety Report 5443442-8 (Version None)
Quarter: 2007Q3

REPORT INFORMATION
  Report Type: 
  Country: None (occurrence: None)
  Receive Date: 20070905
  Receipt Date: 20070903
  Transmission Date: 20080115
  Serious: Yes (Other)
  Sender: FDA-Public Use
  Company Number: NL-ASTRAZENECA-2007AC01646

PATIENT
  Age: 205 Month
  Sex: Male

DRUGS (4)
  1. SYMBICORT [Suspect]
     Indication: ASTHMA
     Dosage: 400/12 MCG, 1 INHALATION BID
     Route: 055
     Dates: start: 20061121, end: 20070501
  2. BRICANYL [Concomitant]
     Route: 055
     Dates: start: 20060328
  3. AZELASTINE HCL [Concomitant]
  4. XYZAL [Concomitant]
     Dates: start: 20060522

REACTIONS (1)
  - DENTAL CARIES [None]
